FAERS Safety Report 10514845 (Version 1)
Quarter: 2014Q4

REPORT INFORMATION
  Report Type: Spontaneous
  Country: US (occurrence: US)
  Receive Date: 20141013
  Receipt Date: 20141013
  Transmission Date: 20150528
  Serious: Yes (Death, Other)
  Sender: FDA-Public Use
  Company Number: US-GILEAD-2014-0117976

PATIENT
  Age: 54 Year
  Sex: Male

DRUGS (16)
  1. OXYCODONE [Concomitant]
     Active Substance: OXYCODONE
  2. HUMALOG [Concomitant]
     Active Substance: INSULIN LISPRO
  3. AZACITIDINE. [Concomitant]
     Active Substance: AZACITIDINE
  4. LANTUS [Concomitant]
     Active Substance: INSULIN GLARGINE
  5. SPIRIVA [Concomitant]
     Active Substance: TIOTROPIUM BROMIDE MONOHYDRATE
  6. DECITABINE. [Concomitant]
     Active Substance: DECITABINE
  7. VENTAVIS [Concomitant]
     Active Substance: ILOPROST
  8. METOLAZONE. [Concomitant]
     Active Substance: METOLAZONE
  9. ZOFRAN                             /00955301/ [Concomitant]
     Active Substance: ONDANSETRON HYDROCHLORIDE
  10. PREDNISONE. [Concomitant]
     Active Substance: PREDNISONE
  11. CARBAMAZEPINE. [Concomitant]
     Active Substance: CARBAMAZEPINE
  12. SYMBICORT [Concomitant]
     Active Substance: BUDESONIDE\FORMOTEROL FUMARATE DIHYDRATE
  13. SILDENAFIL. [Concomitant]
     Active Substance: SILDENAFIL
  14. POTASSIUM [Concomitant]
     Active Substance: POTASSIUM
  15. LETAIRIS [Suspect]
     Active Substance: AMBRISENTAN
     Indication: PULMONARY HYPERTENSION
     Route: 065
     Dates: start: 20140304, end: 20141001
  16. FUROSEMIDE. [Concomitant]
     Active Substance: FUROSEMIDE

REACTIONS (1)
  - Leukaemia [Fatal]
